FAERS Safety Report 5088741-7 (Version None)
Quarter: 2006Q3

REPORT INFORMATION
  Report Type: 
  Country: None (occurrence: None)
  Receive Date: 20060825
  Receipt Date: 20060724
  Transmission Date: 20061208
  Serious: Yes (Other)
  Sender: FDA-Public Use
  Company Number: GB-GLAXOSMITHKLINE-B0432238A

PATIENT
  Sex: Female

DRUGS (1)
  1. PAROXETINE HCL [Suspect]
     Indication: DEPRESSION
     Route: 065

REACTIONS (12)
  - AMENORRHOEA [None]
  - DIARRHOEA [None]
  - DRUG WITHDRAWAL SYNDROME [None]
  - GASTROINTESTINAL DISORDER [None]
  - INSOMNIA [None]
  - MUSCLE SPASMS [None]
  - MYOCLONUS [None]
  - NAUSEA [None]
  - PARAESTHESIA [None]
  - POOR QUALITY SLEEP [None]
  - SLEEP DISORDER [None]
  - SOMNOLENCE [None]
